FAERS Safety Report 6726626-8 (Version None)
Quarter: 2010Q2

REPORT INFORMATION
  Report Type: 
  Country: None (occurrence: None)
  Receive Date: 20100514
  Receipt Date: 20100506
  Transmission Date: 20101027
  Serious: Yes (Other)
  Sender: FDA-Public Use
  Company Number: US-GENENTECH-301574

PATIENT
  Sex: Female
  Weight: 22.8 kg

DRUGS (6)
  1. SOMATROPIN [Suspect]
     Indication: GASTROINTESTINAL DISORDER
     Dosage: 1 MG, 7/WEEK
     Route: 058
     Dates: start: 20030305, end: 20071110
  2. CARAFATE [Concomitant]
     Indication: DRUG USE FOR UNKNOWN INDICATION
     Dosage: 6 ML, TID
     Route: 048
  3. FOLIC ACID [Concomitant]
     Indication: DRUG USE FOR UNKNOWN INDICATION
     Dosage: 1 MG, QD
     Route: 048
  4. KANAMYCINE [Concomitant]
     Indication: DRUG USE FOR UNKNOWN INDICATION
     Dosage: 2 ML, TID
     Route: 048
  5. POTASSIUM PHOSPHATES [Concomitant]
     Indication: DRUG USE FOR UNKNOWN INDICATION
     Dosage: 5 TABLET, QD
     Route: 048
  6. METHOTREXATE [Concomitant]
     Indication: DRUG USE FOR UNKNOWN INDICATION
     Dosage: 0.6 ML, 1/WEEK
     Route: 058

REACTIONS (1)
  - CHOLECYSTECTOMY [None]
